FAERS Safety Report 5013334-7 (Version None)
Quarter: 2006Q2

REPORT INFORMATION
  Report Type: 
  Country: None (occurrence: None)
  Receive Date: 20060530
  Receipt Date: 20060413
  Transmission Date: 20061013
  Serious: Yes (Life-Threatening, Hospitalization, Other)
  Sender: FDA-Public Use
  Company Number: US-GLAXOSMITHKLINE-A0601681A

PATIENT
  Age: 45 Year
  Sex: Male

DRUGS (2)
  1. WELLBUTRIN XL [Suspect]
     Indication: DEPRESSION
     Route: 048
  2. RISPERDAL [Concomitant]
     Route: 048

REACTIONS (5)
  - DEPRESSION [None]
  - DRUG EFFECT DECREASED [None]
  - GRAND MAL CONVULSION [None]
  - POSTICTAL STATE [None]
  - URINARY INCONTINENCE [None]
